FAERS Safety Report 11084017 (Version 4)
Quarter: 2015Q4

REPORT INFORMATION
  Report Type: Spontaneous
  Country: US (occurrence: US)
  Receive Date: 20150501
  Receipt Date: 20151106
  Transmission Date: 20160304
  Serious: Yes (Hospitalization, Other)
  Sender: FDA-Public Use
  Company Number: US-ACTELION-A-NJ2015-117091

PATIENT
  Age: 48 Year
  Sex: Female

DRUGS (3)
  1. REVATIO [Concomitant]
     Active Substance: SILDENAFIL CITRATE
  2. OPSUMIT [Suspect]
     Active Substance: MACITENTAN
     Indication: PULMONARY ARTERIAL HYPERTENSION
     Dosage: 10 MG, QD
     Route: 048
     Dates: start: 20140205
  3. REMODULIN [Concomitant]
     Active Substance: TREPROSTINIL
     Dosage: 77 NG/KG, PER MIN
     Route: 042

REACTIONS (7)
  - Blood pressure abnormal [Unknown]
  - Dialysis [Unknown]
  - Syncope [Unknown]
  - Malaise [Unknown]
  - Pneumonia [Unknown]
  - Central venous catheterisation [Unknown]
  - Hypotension [Unknown]
